FAERS Safety Report 5463242-2 (Version None)
Quarter: 2007Q3

REPORT INFORMATION
  Report Type: 
  Country: None (occurrence: None)
  Receive Date: 20070920
  Receipt Date: 20070912
  Transmission Date: 20080115
  Serious: Yes (Hospitalization)
  Sender: FDA-Public Use
  Company Number: GB-MERCK-0709USA01984

PATIENT
  Sex: Female

DRUGS (7)
  1. PRINIVIL [Suspect]
     Indication: HYPERTENSION
     Route: 048
  2. BENDROFLUMETHIAZIDE [Suspect]
     Indication: HYPERTENSION
     Route: 048
     Dates: start: 20070808
  3. BENDROFLUMETHIAZIDE [Suspect]
     Route: 048
  4. ZANIDIP [Suspect]
     Indication: HYPERTENSION
     Route: 048
     Dates: start: 20070808, end: 20070810
  5. EPROSARTAN MESYLATE [Concomitant]
     Route: 048
     Dates: start: 20061001
  6. ALBUTEROL [Concomitant]
     Route: 065
  7. SERETIDE [Concomitant]
     Route: 065

REACTIONS (5)
  - CHEST PAIN [None]
  - DIZZINESS [None]
  - DRUG INTERACTION [None]
  - MALAISE [None]
  - VISUAL ACUITY REDUCED [None]
